FAERS Safety Report 9732466 (Version 1)
Quarter: 2013Q4

REPORT INFORMATION
  Report Type: Spontaneous
  Country: US (occurrence: US)
  Receive Date: 20131205
  Receipt Date: 20131205
  Transmission Date: 20140711
  Serious: No
  Sender: FDA-Public Use
  Company Number: US-PFIZER INC-2013346742

PATIENT
  Age: 38 Year
  Sex: 0

DRUGS (4)
  1. CELEBREX [Suspect]
     Dosage: UNK
  2. NAPROXEN SODIUM [Suspect]
     Dosage: UNK
  3. ZOSYN [Suspect]
     Dosage: UNK
  4. ROCEPHIN [Suspect]
     Dosage: UNK

REACTIONS (1)
  - Drug hypersensitivity [Unknown]
